FAERS Safety Report 4456987-4 (Version None)
Quarter: 2004Q3

REPORT INFORMATION
  Report Type: 
  Country: None (occurrence: None)
  Receive Date: 20040921
  Receipt Date: 20040914
  Transmission Date: 20050211
  Serious: Yes (Other)
  Sender: FDA-Public Use
  Company Number: VESR0220040002 (0)

PATIENT
  Age: 71 Year
  Sex: Male

DRUGS (2)
  1. VERAPAMIL HCL [Suspect]
     Indication: CLUSTER HEADACHE
     Dosage: SEE IMAGE
     Route: 048
     Dates: start: 20001201, end: 20010901
  2. VERAPAMIL HCL [Suspect]
     Indication: CLUSTER HEADACHE
     Dosage: SEE IMAGE
     Route: 048
     Dates: start: 20011119

REACTIONS (4)
  - DISEASE RECURRENCE [None]
  - HEADACHE [None]
  - LYMPHOMATOID PAPULOSIS [None]
  - SCAR [None]
